FAERS Safety Report 15728732 (Version 1)
Quarter: 2018Q4

REPORT INFORMATION
  Report Type: Spontaneous
  Country: US (occurrence: US)
  Receive Date: 20181212
  Receipt Date: 20181212
  Transmission Date: 20190205
  Serious: No
  Sender: FDA-Public Use
  Company Number: None

PATIENT
  Age: 50 Year
  Sex: Female
  Weight: 83.01 kg

DRUGS (2)
  1. TALTZ [Suspect]
     Active Substance: IXEKIZUMAB
     Indication: PSORIASIS
     Dosage: FREQUENCY: AT WEEK 12 THEN EVERY 4 WEEKS
     Route: 058
     Dates: start: 201804
  2. TALTZ [Suspect]
     Active Substance: IXEKIZUMAB
     Indication: PSORIATIC ARTHROPATHY
     Dosage: FREQUENCY: AT WEEK 12 THEN EVERY 4 WEEKS
     Route: 058
     Dates: start: 201804

REACTIONS (1)
  - Upper limb fracture [None]
